FAERS Safety Report 24234526 (Version 1)
Quarter: 2024Q3

REPORT INFORMATION
  Report Type: Spontaneous
  Country: CN (occurrence: CN)
  Receive Date: 20240821
  Receipt Date: 20240821
  Transmission Date: 20241016
  Serious: Yes (Other)
  Sender: MYLAN
  Company Number: CN-MYLANLABS-2024M1076980

PATIENT

DRUGS (5)
  1. ATORVASTATIN [Suspect]
     Active Substance: ATORVASTATIN
     Indication: Ischaemic stroke
     Dosage: 40 MILLIGRAM, QD (ONCE A DAY)
     Route: 048
  2. INVESTIGATIONAL PRODUCT [Suspect]
     Active Substance: INVESTIGATIONAL PRODUCT
     Indication: Ischaemic stroke
     Dosage: 50 MILLIGRAM, QD (250,000 U)
     Route: 042
  3. SODIUM CHLORIDE [Suspect]
     Active Substance: SODIUM CHLORIDE
     Indication: Ischaemic stroke
     Dosage: 500 MILLILITER, QD (5 MG (500,000 IU)/VIAL] DISSOLVED IN 500 ML)
     Route: 042
  4. ROSUVASTATIN [Concomitant]
     Active Substance: ROSUVASTATIN\ROSUVASTATIN CALCIUM
     Indication: Cerebrovascular accident prophylaxis
     Dosage: UNK UNK, PRN
     Route: 065
  5. EDARAVONE [Concomitant]
     Active Substance: EDARAVONE
     Indication: Cerebrovascular accident prophylaxis
     Dosage: UNK UNK, PRN
     Route: 065

REACTIONS (1)
  - Haemorrhage urinary tract [Unknown]
